FAERS Safety Report 12742260 (Version 1)
Quarter: 2016Q3

REPORT INFORMATION
  Report Type: Report from Study
  Country: US (occurrence: US)
  Receive Date: 20160914
  Receipt Date: 20160914
  Transmission Date: 20161109
  Serious: Yes (Other)
  Sender: FDA-Public Use
  Company Number: US-MALLINCKRODT-T201604240

PATIENT
  Age: 5 Month
  Weight: 10 kg

DRUGS (1)
  1. REPOSITORY CORTICOTROPIN INJECTION [Suspect]
     Active Substance: CORTICOTROPIN
     Indication: INFANTILE SPASMS
     Dosage: 0.43ML TWICE DAILY
     Dates: start: 20160820

REACTIONS (8)
  - Rhinorrhoea [Unknown]
  - Irritability [Recovering/Resolving]
  - Blood sodium increased [Unknown]
  - Insomnia [Unknown]
  - Abdominal discomfort [Unknown]
  - Constipation [Unknown]
  - Swelling face [Unknown]
  - Blood pressure increased [Recovering/Resolving]

NARRATIVE: CASE EVENT DATE: 201608
